FAERS Safety Report 6528029-8 (Version None)
Quarter: 2010Q1

REPORT INFORMATION
  Report Type: 
  Country: None (occurrence: None)
  Receive Date: 20100106
  Receipt Date: 20091201
  Transmission Date: 20100710
  Serious: Yes (Other)
  Sender: FDA-Public Use
  Company Number: US-SANOFI-AVENTIS-2010SA000171

PATIENT
  Age: 55 Year
  Sex: Male
  Weight: 120.9 kg

DRUGS (4)
  1. DOCETAXEL [Suspect]
     Indication: PROSTATE CANCER
     Route: 042
     Dates: start: 20080626, end: 20080626
  2. DOCETAXEL [Suspect]
     Route: 042
     Dates: start: 20080425, end: 20080425
  3. CASODEX [Suspect]
     Indication: PROSTATE CANCER
  4. LISINOPRIL [Concomitant]

REACTIONS (1)
  - HYPONATRAEMIA [None]
